FAERS Safety Report 14837384 (Version 1)
Quarter: 2018Q2

REPORT INFORMATION
  Report Type: Report from Study
  Country: KR (occurrence: KR)
  Receive Date: 20180502
  Receipt Date: 20180502
  Transmission Date: 20180711
  Serious: Yes (Hospitalization, Other)
  Sender: FDA-Public Use
  Company Number: KR-ASTELLAS-2017US026749

PATIENT
  Age: 66 Year
  Sex: Male

DRUGS (10)
  1. ENZALUTAMIDE [Suspect]
     Active Substance: ENZALUTAMIDE
     Indication: HORMONE-REFRACTORY PROSTATE CANCER
     Dosage: 160 MG, ONCE DAILY (4 CAPSULES)
     Route: 048
     Dates: start: 20170123, end: 20170518
  2. MOLSITON [Concomitant]
     Indication: ANGINA PECTORIS
     Dosage: 2 DF (DAILY DOSE), TWICE DAILY
     Route: 048
  3. OCODONE [Concomitant]
     Indication: PAIN
     Dosage: 2 DF (DAILY DOSE), TWICE DAILY
     Route: 048
  4. AMOSARTAN [Concomitant]
     Indication: ANGINA PECTORIS
     Route: 048
  5. SIGMART [Concomitant]
     Active Substance: NICORANDIL
     Indication: ANGINA PECTORIS
     Dosage: 2 DF (DAILY DOSE), TWICE DAILY
     Route: 048
  6. DILATREND [Concomitant]
     Active Substance: CARVEDILOL
     Indication: ANGINA PECTORIS
     Route: 048
  7. XATRAL [Concomitant]
     Active Substance: ALFUZOSIN
     Indication: BENIGN PROSTATIC HYPERPLASIA
     Route: 048
     Dates: start: 20170123
  8. DUROGESIC [Concomitant]
     Active Substance: FENTANYL
     Indication: PAIN
     Dosage: 1PATCH(100 MCG/H), EVERY 3 DAYS
     Route: 062
  9. ENAFON [Concomitant]
     Indication: DEPRESSION
     Route: 048
  10. MAXGREL [Concomitant]
     Indication: ANGINA PECTORIS
     Route: 048

REACTIONS (3)
  - Asthenia [Unknown]
  - Anxiety [Recovering/Resolving]
  - Delirium [Recovering/Resolving]

NARRATIVE: CASE EVENT DATE: 201703
